FAERS Safety Report 7079078-5 (Version None)
Quarter: 2010Q4

REPORT INFORMATION
  Report Type: 
  Country: None (occurrence: None)
  Receive Date: 20101102
  Receipt Date: 20101027
  Transmission Date: 20110411
  Serious: Yes (Other)
  Sender: FDA-Public Use
  Company Number: US-ROCHE-735992

PATIENT
  Sex: Male

DRUGS (1)
  1. AVASTIN [Suspect]
     Indication: MACULAR DEGENERATION
     Dosage: DOSE:1.25 MG/0.05ML ;FREQUENCY: ONCE
     Route: 031
     Dates: start: 20100715

REACTIONS (2)
  - PRODUCT QUALITY ISSUE [None]
  - UVEITIS [None]
